FAERS Safety Report 6203457-9 (Version None)
Quarter: 2009Q2

REPORT INFORMATION
  Report Type: 
  Country: None (occurrence: None)
  Receive Date: 20090527
  Receipt Date: 20090520
  Transmission Date: 20091009
  Serious: Yes (Hospitalization)
  Sender: FDA-Public Use
  Company Number: CN-ASTRAZENECA-2009AP02559

PATIENT
  Age: 46 Year
  Sex: Female

DRUGS (1)
  1. OXIS [Suspect]
     Indication: ASTHMA
     Route: 055
     Dates: start: 20030101, end: 20030101

REACTIONS (1)
  - EPIDERMOLYSIS BULLOSA [None]
